FAERS Safety Report 8624447-2 (Version None)
Quarter: 2012Q3

REPORT INFORMATION
  Report Type: 
  Country: None (occurrence: None)
  Receive Date: 20120827
  Receipt Date: 20120813
  Transmission Date: 20120928
  Serious: Yes (Other)
  Sender: FDA-Public Use
  Company Number: BR-PFIZER INC-2012194532

PATIENT
  Age: 61 Year
  Sex: Male

DRUGS (5)
  1. CLOPIN [Concomitant]
     Indication: PLATELET DISORDER
     Dosage: 75 MG, 1X/DAY
     Dates: start: 20060401
  2. LOSARTAN POTASSIUM [Concomitant]
     Indication: CARDIAC DISORDER
     Dosage: 50 MG, TWO TABLETS EVERY TWELVE HOURS
     Dates: start: 20050101
  3. LOSARTAN POTASSIUM [Concomitant]
     Indication: BLOOD PRESSURE
  4. ATENOLOL [Suspect]
     Indication: BLOOD PRESSURE
     Dosage: 50 MG, 1X/DAY, IN MORNING
     Route: 048
  5. LIPITOR [Suspect]
     Dosage: 20 MG (HALF TABLET OF 40MG), 1X/DAY
     Route: 048
     Dates: start: 20050101

REACTIONS (2)
  - RHINITIS ALLERGIC [None]
  - DIABETES MELLITUS [None]
